FAERS Safety Report 6681924-1 (Version None)
Quarter: 2010Q2

REPORT INFORMATION
  Report Type: 
  Country: None (occurrence: None)
  Receive Date: 20100409
  Receipt Date: 20100401
  Transmission Date: 20101027
  Serious: Yes (Death)
  Sender: FDA-Public Use
  Company Number: 009265

PATIENT
  Age: 76 Year
  Sex: Male

DRUGS (2)
  1. PLETAL [Suspect]
     Dosage: 50 MG, QD, ORAL
     Route: 048
     Dates: start: 20090824, end: 20091022
  2. ASPIRIN [Suspect]
     Dosage: 100 MG, QD, ORAL
     Route: 048
     Dates: end: 20091022

REACTIONS (1)
  - DEATH [None]
